FAERS Safety Report 5953903-0 (Version None)
Quarter: 2008Q4

REPORT INFORMATION
  Report Type: 
  Country: None (occurrence: None)
  Receive Date: 20081114
  Receipt Date: 20081110
  Transmission Date: 20090506
  Serious: Yes (Hospitalization)
  Sender: FDA-Public Use
  Company Number: SE-ASTRAZENECA-2008SE05202

PATIENT
  Age: 79 Year
  Sex: Male

DRUGS (5)
  1. METOPROLOL TARTRATE [Suspect]
     Route: 048
     Dates: start: 20080601
  2. METOPROLOL TARTRATE [Suspect]
     Route: 048
     Dates: start: 20080901
  3. DIGOXIN [Suspect]
     Indication: ATRIAL FIBRILLATION
     Route: 048
     Dates: start: 20080601, end: 20080903
  4. WARFARIN SODIUM [Concomitant]
     Route: 048
  5. TRIOBE [Concomitant]
     Route: 048

REACTIONS (1)
  - SICK SINUS SYNDROME [None]
